FAERS Safety Report 9207927 (Version 2)
Quarter: 2013Q3

REPORT INFORMATION
  Report Type: Spontaneous
  Country: US (occurrence: US)
  Receive Date: 20130403
  Receipt Date: 20130815
  Transmission Date: 20140515
  Serious: Yes (Hospitalization, Other)
  Sender: FDA-Public Use
  Company Number: US-ELI_LILLY_AND_COMPANY-US201303008192

PATIENT
  Age: 63 Year
  Sex: Male

DRUGS (3)
  1. EFFIENT [Suspect]
     Indication: MYOCARDIAL INFARCTION
     Dosage: 10 MG, QD
     Dates: start: 20120216
  2. ASPIRIN [Concomitant]
     Dosage: 325 MG, QD
     Dates: end: 201207
  3. WELLBUTRIN [Concomitant]

REACTIONS (8)
  - Neoplasm malignant [Unknown]
  - Dysuria [Unknown]
  - Penile haemorrhage [Recovered/Resolved]
  - Haemorrhage urinary tract [Unknown]
  - Urinary bladder haemorrhage [Recovered/Resolved]
  - Pain [Unknown]
  - Abdominal distension [Unknown]
  - Micturition urgency [Unknown]
